FAERS Safety Report 14753134 (Version 1)
Quarter: 2018Q2

REPORT INFORMATION
  Report Type: Spontaneous
  Country: US (occurrence: US)
  Receive Date: 20180412
  Receipt Date: 20180412
  Transmission Date: 20180711
  Serious: Yes (Hospitalization)
  Sender: FDA-Public Use
  Company Number: US-SA-2018SA104503

PATIENT
  Age: 18 Year
  Sex: Female

DRUGS (2)
  1. IBUPROFEN. [Concomitant]
     Active Substance: IBUPROFEN
     Route: 065
  2. DIPHENHYDRAMINE. [Suspect]
     Active Substance: DIPHENHYDRAMINE
     Dosage: BOTTLE OF IBUPROFEN
     Route: 065

REACTIONS (12)
  - Acute kidney injury [Recovered/Resolved]
  - Hypotension [Recovered/Resolved]
  - Seizure [Recovered/Resolved]
  - Cardiogenic shock [Recovered/Resolved]
  - Acute hepatic failure [Recovered/Resolved]
  - Acute respiratory distress syndrome [Recovered/Resolved]
  - Tachycardia [Recovered/Resolved]
  - Overdose [Unknown]
  - Unresponsive to stimuli [Recovered/Resolved]
  - Rhabdomyolysis [Recovered/Resolved]
  - Cardiac arrest [Recovered/Resolved]
  - Compartment syndrome [Recovered/Resolved]
